FAERS Safety Report 8329525-3 (Version None)
Quarter: 2012Q2

REPORT INFORMATION
  Report Type: 
  Country: None (occurrence: None)
  Receive Date: 20120502
  Receipt Date: 20120424
  Transmission Date: 20120825
  Serious: Yes (Hospitalization, Other)
  Sender: FDA-Public Use
  Company Number: BR-ABBOTT-12P-020-0919897-00

PATIENT
  Sex: Male

DRUGS (3)
  1. ARAVA [Suspect]
     Indication: PRODUCT USED FOR UNKNOWN INDICATION
     Dates: end: 20111101
  2. METHOTREXATE [Suspect]
     Indication: PRODUCT USED FOR UNKNOWN INDICATION
     Dosage: 20 MG PER WEEK
  3. HUMIRA [Suspect]
     Indication: RHEUMATOID ARTHRITIS
     Dates: start: 20110326, end: 20111101

REACTIONS (14)
  - GALLBLADDER DISORDER [None]
  - FATIGUE [None]
  - DIVERTICULUM INTESTINAL [None]
  - ULTRASOUND LIVER ABNORMAL [None]
  - PYREXIA [None]
  - STAPHYLOCOCCAL SEPSIS [None]
  - LIVER DISORDER [None]
  - ASCITES [None]
  - COUGH [None]
  - ABDOMINAL PAIN [None]
  - INFECTION [None]
  - DYSPNOEA [None]
  - PROTEUS INFECTION [None]
  - DECREASED APPETITE [None]
